FAERS Safety Report 5877864-8 (Version None)
Quarter: 2008Q3

REPORT INFORMATION
  Report Type: 
  Country: None (occurrence: None)
  Receive Date: 20080911
  Receipt Date: 20080901
  Transmission Date: 20090109
  Serious: Yes (Hospitalization)
  Sender: FDA-Public Use
  Company Number: IN-AMGEN-UK298516

PATIENT
  Sex: Male

DRUGS (6)
  1. PANITUMUMAB [Suspect]
     Indication: SQUAMOUS CELL CARCINOMA
     Route: 042
     Dates: start: 20080417
  2. CISPLATIN [Suspect]
     Dates: start: 20080417
  3. FLUOROURACIL [Suspect]
  4. PANTOP [Concomitant]
     Dates: start: 20080802, end: 20080808
  5. DUPHALAC [Concomitant]
     Route: 048
     Dates: start: 20080803, end: 20080806
  6. ONDANSETRON [Concomitant]
     Route: 042
     Dates: start: 20080801, end: 20080802

REACTIONS (7)
  - ANAEMIA [None]
  - FEBRILE NEUTROPENIA [None]
  - HYPOCALCAEMIA [None]
  - HYPOKALAEMIA [None]
  - HYPOMAGNESAEMIA [None]
  - HYPONATRAEMIA [None]
  - THROMBOCYTOPENIA [None]
